FAERS Safety Report 7576594-4 (Version None)
Quarter: 2011Q2

REPORT INFORMATION
  Report Type: 
  Country: None (occurrence: None)
  Receive Date: 20110628
  Receipt Date: 20110516
  Transmission Date: 20111010
  Serious: No
  Sender: FDA-Public Use
  Company Number: US-BAYER-2011-043012

PATIENT
  Age: 61 Year
  Sex: Female
  Weight: 63.492 kg

DRUGS (1)
  1. EOVIST [Suspect]
     Indication: NUCLEAR MAGNETIC RESONANCE IMAGING
     Dosage: 10 ML, ONCE
     Route: 042
     Dates: start: 20110422, end: 20110422

REACTIONS (2)
  - HEART RATE INCREASED [None]
  - ASTHENIA [None]
